FAERS Safety Report 5700260-0 (Version None)
Quarter: 2008Q2

REPORT INFORMATION
  Report Type: 
  Country: None (occurrence: None)
  Receive Date: 20080410
  Receipt Date: 20080328
  Transmission Date: 20081010
  Serious: Yes (Disabling, Other)
  Sender: FDA-Public Use
  Company Number: CA-PFIZER INC-2007079646

PATIENT
  Sex: Female
  Weight: 58.1 kg

DRUGS (5)
  1. CHAMPIX [Suspect]
     Route: 048
     Dates: start: 20070521, end: 20070530
  2. TEGRETOL [Concomitant]
     Indication: EPILEPSY
  3. CRESTOR [Concomitant]
     Indication: BLOOD CHOLESTEROL INCREASED
  4. BEZALIP - SLOW RELEASE [Concomitant]
     Indication: BLOOD TRIGLYCERIDES INCREASED
  5. MERIDIA [Concomitant]
     Indication: OBESITY

REACTIONS (7)
  - ACCOMMODATION DISORDER [None]
  - AREFLEXIA [None]
  - FATIGUE [None]
  - HALLUCINATION [None]
  - RESTLESSNESS [None]
  - SPEECH DISORDER [None]
  - THINKING ABNORMAL [None]
